FAERS Safety Report 7744965-9 (Version None)
Quarter: 2011Q3

REPORT INFORMATION
  Report Type: 
  Country: None (occurrence: None)
  Receive Date: 20110913
  Receipt Date: 20110901
  Transmission Date: 20111222
  Serious: Yes (Other)
  Sender: FDA-Public Use
  Company Number: US-BIOGENIDEC-2011BI029873

PATIENT
  Age: 48 Year
  Sex: Female

DRUGS (5)
  1. CLARITIN [Concomitant]
     Indication: PREMEDICATION
  2. PREDNISONE [Concomitant]
     Indication: PREMEDICATION
     Dates: start: 20110831
  3. TYSABRI [Suspect]
     Indication: MULTIPLE SCLEROSIS
     Route: 042
     Dates: start: 20110525
  4. BENADRYL [Concomitant]
     Indication: PREMEDICATION
     Dates: start: 20110831, end: 20110901
  5. SOLU-MEDROL [Concomitant]
     Indication: PREMEDICATION
     Dates: start: 20110801

REACTIONS (3)
  - HYPERSENSITIVITY [None]
  - WHITE BLOOD CELL COUNT DECREASED [None]
  - WHITE BLOOD CELL COUNT INCREASED [None]
